FAERS Safety Report 16533136 (Version 2)
Quarter: 2019Q3

REPORT INFORMATION
  Report Type: Spontaneous
  Country: US (occurrence: US)
  Receive Date: 20190704
  Receipt Date: 20190917
  Transmission Date: 20191004
  Serious: No
  Sender: FDA-Public Use
  Company Number: US-RECKITT BENCKISER HEALTHCARE INT LIMITED-RB-95097-2018

PATIENT
  Sex: Female

DRUGS (1)
  1. MUCINEX DM MAXIMUM STRENGTH [Suspect]
     Active Substance: DEXTROMETHORPHAN HYDROBROMIDE\GUAIFENESIN
     Indication: PRODUCT USED FOR UNKNOWN INDICATION
     Dosage: 2400 MILLIGRAM, SINGLE
     Route: 065
     Dates: start: 20181217

REACTIONS (3)
  - Head discomfort [Unknown]
  - Insomnia [Unknown]
  - Accidental overdose [Unknown]

NARRATIVE: CASE EVENT DATE: 20181217
